FAERS Safety Report 7488056-3 (Version None)
Quarter: 2011Q2

REPORT INFORMATION
  Report Type: 
  Country: None (occurrence: None)
  Receive Date: 20110518
  Receipt Date: 20110512
  Transmission Date: 20111010
  Serious: Yes (Other)
  Sender: FDA-Public Use
  Company Number: US-ABBOTT-11P-163-0726011-00

PATIENT
  Age: 73 Year
  Sex: Male

DRUGS (3)
  1. HUMIRA [Suspect]
     Route: 058
     Dates: start: 20110506
  2. METHOTREXATE [Concomitant]
     Indication: PRODUCT USED FOR UNKNOWN INDICATION
  3. HUMIRA [Suspect]
     Indication: PSORIASIS
     Route: 058
     Dates: start: 20060401, end: 20110201

REACTIONS (5)
  - BLEEDING TIME ABNORMAL [None]
  - INCREASED TENDENCY TO BRUISE [None]
  - INGUINAL HERNIA [None]
  - PLATELET COUNT DECREASED [None]
  - SPLENOMEGALY [None]
